FAERS Safety Report 12894416 (Version 2)
Quarter: 2016Q4

REPORT INFORMATION
  Report Type: Spontaneous
  Country: FR (occurrence: FR)
  Receive Date: 20161028
  Receipt Date: 20161104
  Transmission Date: 20170207
  Serious: Yes (Hospitalization)
  Sender: FDA-Public Use
  Company Number: FR-009507513-1610FRA012704

PATIENT
  Age: 50 Year
  Sex: Female

DRUGS (15)
  1. EZETROL [Suspect]
     Active Substance: EZETIMIBE
     Dosage: 1 DF, IN THE EVENING
     Route: 048
  2. GILENYA [Suspect]
     Active Substance: FINGOLIMOD HYDROCHLORIDE
     Indication: MULTIPLE SCLEROSIS
     Dosage: 0.5 MG, QPM
     Route: 048
     Dates: start: 2016, end: 20160727
  3. CYMBALTA [Suspect]
     Active Substance: DULOXETINE HYDROCHLORIDE
     Dosage: 2 DF IN THE MORNING
     Route: 048
  4. TAHOR [Suspect]
     Active Substance: ATORVASTATIN CALCIUM
     Dosage: 1 DF IN THE EVENING
  5. IXPRIM (ACETAMINOPHEN (+) TRAMADOL HYDROCHLORIDE) [Suspect]
     Active Substance: ACETAMINOPHEN\TRAMADOL
     Indication: PAIN
     Dosage: 2 TABLETS TID PRN
     Route: 048
     Dates: start: 2016
  6. LYRICA [Suspect]
     Active Substance: PREGABALIN
     Indication: NEURALGIA
     Dosage: 200MG IN THE MORNING AND IN THE EVENING
     Route: 048
     Dates: start: 201602
  7. MOVICOL [Suspect]
     Active Substance: POLYETHYLENE GLYCOL 3350\POTASSIUM CHLORIDE\SODIUM BICARBONATE\SODIUM CHLORIDE
     Dosage: 2 HAGS IN THE MORNING AND AT NOON
  8. BACLOFEN. [Suspect]
     Active Substance: BACLOFEN
     Indication: MUSCLE SPASTICITY
     Route: 048
  9. LEXOMIL [Suspect]
     Active Substance: BROMAZEPAM
     Dosage: 1.5 MG, IN THE MORNING AT NOON AND IN THE EVENING
  10. GAVISCON (SODIUM ALGINATE (+) SODIUM BICARBONATE) [Suspect]
     Active Substance: SODIUM ALGINATE\SODIUM BICARBONATE
     Dosage: 1 BAG AT NOON AND IN THE EVENING, AS NEEDED
  11. VESICARE [Suspect]
     Active Substance: SOLIFENACIN SUCCINATE
     Dosage: 2 DF IN THE MORNING
  12. LATANOPROST. [Suspect]
     Active Substance: LATANOPROST
     Dosage: 1 DROP IN EACH EYE AT 6P.M.
  13. EUPANTOL [Suspect]
     Active Substance: PANTOPRAZOLE SODIUM
     Dosage: 1 DF IN THE EVENING
  14. FOLINORAL [Suspect]
     Active Substance: LEUCOVORIN CALCIUM
     Dosage: 1 DF IN THE MORNING
  15. IMOVANE [Suspect]
     Active Substance: ZOPICLONE
     Dosage: 1 AT BEDTIME PRN

REACTIONS (2)
  - Loss of consciousness [Recovered/Resolved]
  - Malaise [Recovered/Resolved]

NARRATIVE: CASE EVENT DATE: 20160727
